FAERS Safety Report 6180273-8 (Version None)
Quarter: 2009Q2

REPORT INFORMATION
  Report Type: 
  Country: None (occurrence: None)
  Receive Date: 20090501
  Receipt Date: 20090421
  Transmission Date: 20091009
  Serious: Yes (Other)
  Sender: FDA-Public Use
  Company Number: CIP09000999

PATIENT
  Age: 82 Year
  Sex: Female

DRUGS (7)
  1. ACTONEL [Suspect]
     Indication: OSTEOPOROSIS
     Dosage: 17.5 MG ONCE WEEKLY, ORAL
     Route: 048
     Dates: start: 20090311, end: 20090319
  2. OSTELUC (ETODOLAC) [Concomitant]
  3. NIZATIDINE [Concomitant]
  4. OSTELUC (ETODOLAC) [Concomitant]
  5. NIZATIDINE [Concomitant]
  6. LIPOVAS /00848101/ (SIMVASTATIN) [Concomitant]
  7. ASPIRIN [Concomitant]

REACTIONS (5)
  - HYPERCALCAEMIA [None]
  - OEDEMA PERIPHERAL [None]
  - PAIN IN EXTREMITY [None]
  - RENAL FAILURE ACUTE [None]
  - WHITE BLOOD CELL COUNT INCREASED [None]
